FAERS Safety Report 16408697 (Version 2)
Quarter: 2019Q3

REPORT INFORMATION
  Report Type: Report from Study
  Country: CH (occurrence: CH)
  Receive Date: 20190610
  Receipt Date: 20190715
  Transmission Date: 20191004
  Serious: Yes (Other)
  Sender: FDA-Public Use
  Company Number: CH-BAYER-2019-034590

PATIENT
  Age: 62 Year
  Sex: Male

DRUGS (13)
  1. ASPIRIN CARDIO [Concomitant]
     Active Substance: ASPIRIN
     Dosage: 1 DF, QD, IN THE MORNING
     Route: 048
  2. NEXAVAR [Suspect]
     Active Substance: SORAFENIB
     Indication: HEPATOCELLULAR CARCINOMA
     Dosage: 400 UNK
     Route: 048
     Dates: end: 20190415
  3. INSULIN LENTE [INSULIN ZINC SUSPENSION] [Concomitant]
     Dosage: 22 U, HS
  4. VIT D [Concomitant]
     Active Substance: VITAMIN D NOS
     Dosage: 8 GTT, QD, IN THE MORNING
     Route: 048
  5. ALDACTONE [Concomitant]
     Active Substance: SPIRONOLACTONE
     Dosage: 1 DF, QD, IN THE MORNING
     Route: 048
  6. NEXAVAR [Suspect]
     Active Substance: SORAFENIB
     Indication: HEPATOCELLULAR CARCINOMA
     Dosage: 200 MG, BID
     Route: 048
     Dates: start: 20190220, end: 20190415
  7. BENERVA [Concomitant]
     Active Substance: THIAMINE HYDROCHLORIDE
     Dosage: 1 DF, QD, IN THE MORNING
     Route: 048
  8. XIFAXAN [Concomitant]
     Active Substance: RIFAXIMIN
     Dosage: 550 MG, BID
  9. LERCANIDIPINE [Concomitant]
     Active Substance: LERCANIDIPINE
     Dosage: 5 MG (HALF A TABLET), QD, IN THE MORNING
     Route: 048
  10. JANUMET [Concomitant]
     Active Substance: METFORMIN HYDROCHLORIDE\SITAGLIPTIN PHOSPHATE
     Dosage: 1 DF, HS
     Route: 048
  11. BECOZYM [VITAMIN B NOS] [Concomitant]
     Dosage: 1 DF, BID
  12. CARVEDILOL. [Concomitant]
     Active Substance: CARVEDILOL
     Dosage: 0.25 BID, 1-0-1
  13. INEGY [Concomitant]
     Active Substance: EZETIMIBE\SIMVASTATIN
     Dosage: 1 DF, QD, IN THE MORNING

REACTIONS (3)
  - Off label use [Unknown]
  - Loss of consciousness [Recovered/Resolved]
  - Malaise [Recovered/Resolved]

NARRATIVE: CASE EVENT DATE: 20190415
